FAERS Safety Report 7964371-1 (Version None)
Quarter: 2011Q4

REPORT INFORMATION
  Report Type: 
  Country: None (occurrence: None)
  Receive Date: 20111208
  Receipt Date: 20111201
  Transmission Date: 20120403
  Serious: Yes (Other)
  Sender: FDA-Public Use
  Company Number: US-PFIZER INC-2011294572

PATIENT
  Sex: Female

DRUGS (1)
  1. LEVOXYL [Suspect]
     Dosage: 50 UG, UNK

REACTIONS (5)
  - SWELLING FACE [None]
  - WEIGHT INCREASED [None]
  - FLUID RETENTION [None]
  - MYALGIA [None]
  - FEELING COLD [None]
